FAERS Safety Report 6085828-7 (Version None)
Quarter: 2009Q1

REPORT INFORMATION
  Report Type: 
  Country: None (occurrence: None)
  Receive Date: 20090220
  Receipt Date: 20090213
  Transmission Date: 20090719
  Serious: Yes (Hospitalization)
  Sender: FDA-Public Use
  Company Number: A0769418A

PATIENT
  Age: 55 Year
  Sex: Female
  Weight: 75 kg

DRUGS (2)
  1. AVANDIA [Suspect]
     Dosage: 4MG TWICE PER DAY
     Route: 065
     Dates: start: 20000601, end: 20060801
  2. ACTOS [Concomitant]
     Dates: start: 20050201

REACTIONS (6)
  - CARDIAC FAILURE CONGESTIVE [None]
  - HYPERLIPIDAEMIA [None]
  - HYPERTENSION [None]
  - PULMONARY HYPERTENSION [None]
  - RENAL DISORDER [None]
  - THROMBOSIS [None]
